FAERS Safety Report 11277483 (Version 2)
Quarter: 2015Q3

REPORT INFORMATION
  Report Type: Spontaneous
  Country: US (occurrence: US)
  Receive Date: 20150716
  Receipt Date: 20150720
  Transmission Date: 20151125
  Serious: Yes (Hospitalization)
  Sender: FDA-Public Use
  Company Number: US-BAYER-2015-379669

PATIENT
  Age: 20 Year
  Sex: Female
  Weight: 64 kg

DRUGS (1)
  1. COPPERTONE ULTRAGUARD SPF 50 [Suspect]
     Active Substance: AVOBENZONE\DIHYDROXYACETONE\DIMETHICONE COPOLYOL\HEXYL LAURATE\HOMOSALATE\OCTISALATE\OCTOCRYLENE\OXYBENZONE\PROPYLENE GLYCOL
     Dosage: 1 DF, PRN
     Route: 061
     Dates: start: 20150706, end: 20150708

REACTIONS (10)
  - Skin exfoliation [Recovered/Resolved]
  - Blister [Recovered/Resolved]
  - Swelling face [Recovered/Resolved]
  - Pain of skin [Not Recovered/Not Resolved]
  - Chemical injury [Recovered/Resolved]
  - Blister [Recovered/Resolved]
  - Sunburn [Not Recovered/Not Resolved]
  - Erythema [Recovered/Resolved]
  - Eye swelling [Recovered/Resolved]
  - Erythema [Not Recovered/Not Resolved]

NARRATIVE: CASE EVENT DATE: 201507
